FAERS Safety Report 25626835 (Version 1)
Quarter: 2025Q3

REPORT INFORMATION
  Report Type: Report from Study
  Country: CA (occurrence: CA)
  Receive Date: 20250731
  Receipt Date: 20250731
  Transmission Date: 20251021
  Serious: Yes (Other)
  Sender: TAKEDA
  Company Number: CA-TAKEDA-2024TUS084443

PATIENT
  Sex: Female

DRUGS (2)
  1. VEDOLIZUMAB [Suspect]
     Active Substance: VEDOLIZUMAB
     Indication: Crohn^s disease
  2. VEDOLIZUMAB [Suspect]
     Active Substance: VEDOLIZUMAB
     Indication: Crohn^s disease
     Dosage: 108 MILLIGRAM, Q2WEEKS
     Dates: start: 20240809

REACTIONS (7)
  - Blindness unilateral [Unknown]
  - Impaired work ability [Unknown]
  - Impaired driving ability [Unknown]
  - Pain [Recovering/Resolving]
  - Arthritis [Recovering/Resolving]
  - Gait inability [Recovering/Resolving]
  - Malaise [Recovering/Resolving]
